FAERS Safety Report 16499768 (Version 2)
Quarter: 2019Q3

REPORT INFORMATION
  Report Type: Spontaneous
  Country: NL (occurrence: NL)
  Receive Date: 20190701
  Receipt Date: 20190703
  Transmission Date: 20191004
  Serious: Yes (Death)
  Sender: FDA-Public Use
  Company Number: NL-ACCORD-136207

PATIENT
  Age: 66 Year
  Sex: Female

DRUGS (8)
  1. LETROZOLE. [Suspect]
     Active Substance: LETROZOLE
     Indication: BREAST CANCER
     Dosage: STRENGTH 2.5 MG, 1X PER DAY 1 PIECE
     Dates: start: 20190308
  2. NOVORAPID [Concomitant]
     Active Substance: INSULIN ASPART
  3. INDAPAMIDE/PERINDOPRIL [Concomitant]
     Dosage: 1DD 4/2.25MG
  4. CLOVATE [Concomitant]
  5. PULMICORT TURBUHALER [Concomitant]
     Active Substance: BUDESONIDE
     Dosage: 1DD 400MCG
  6. METOPROLOL. [Concomitant]
     Active Substance: METOPROLOL
     Dosage: 1DD,STRENGTH : 150MG
  7. ESOMEPRAZOLE/ESOMEPRAZOLE MAGNESIUM/ESOMEPRAZOLE SODIUM [Concomitant]
     Dosage: 1 DD 40 MG
  8. IPRATROPIUM [Concomitant]
     Active Substance: IPRATROPIUM
     Dosage: 1DD 40MCG

REACTIONS (1)
  - Myocardial infarction [Fatal]

NARRATIVE: CASE EVENT DATE: 20190420
